FAERS Safety Report 23511369 (Version 1)
Quarter: 2024Q1

REPORT INFORMATION
  Report Type: Spontaneous
  Country: US (occurrence: US)
  Receive Date: 20240212
  Receipt Date: 20240212
  Transmission Date: 20240409
  Serious: Yes (Other)
  Sender: FDA-Public Use
  Company Number: US-OPELLA-2024OHG003849

PATIENT
  Age: 55 Year
  Sex: Male

DRUGS (1)
  1. MENTHOL [Suspect]
     Active Substance: MENTHOL

REACTIONS (1)
  - Pleural mesothelioma malignant [Unknown]
